FAERS Safety Report 21722289 (Version 1)
Quarter: 2022Q4

REPORT INFORMATION
  Report Type: Spontaneous
  Country: US (occurrence: US)
  Receive Date: 20221213
  Receipt Date: 20221213
  Transmission Date: 20230113
  Serious: No
  Sender: FDA-Public Use
  Company Number: US-PFIZER INC-202201359064

PATIENT
  Sex: Female

DRUGS (1)
  1. PAXLOVID [Suspect]
     Active Substance: NIRMATRELVIR\RITONAVIR
     Indication: COVID-19 treatment
     Dosage: UNK

REACTIONS (7)
  - Chest discomfort [Unknown]
  - Head discomfort [Unknown]
  - Chest pain [Unknown]
  - Dysgeusia [Unknown]
  - Insomnia [Unknown]
  - Tinnitus [Unknown]
  - Dizziness [Unknown]
